FAERS Safety Report 8404062-6 (Version None)
Quarter: 2012Q2

REPORT INFORMATION
  Report Type: 
  Country: None (occurrence: None)
  Receive Date: 20120601
  Receipt Date: 20120521
  Transmission Date: 20120825
  Serious: Yes (Life-Threatening, Hospitalization)
  Sender: FDA-Public Use
  Company Number: US-MYLANLABS-2012S1010828

PATIENT
  Age: 73 Year
  Sex: Male

DRUGS (12)
  1. AMLODIPINE [Concomitant]
     Route: 065
  2. FUROSEMIDE [Concomitant]
     Route: 065
  3. SPIRONOLACTONE [Concomitant]
     Dosage: 25MG DAILY
     Route: 065
  4. DILTIAZEM [Concomitant]
     Dosage: 120MG DAILY
     Route: 048
  5. SIMVASTATIN [Concomitant]
     Dosage: 20MG DAILY
     Route: 065
  6. ISOSORBIDE DINITRATE [Concomitant]
     Route: 065
  7. INSULIN [Concomitant]
     Route: 058
  8. CALCIUM ACETATE [Concomitant]
     Dosage: 667MG WITH MEALS
     Route: 065
  9. HYDRALAZINE HCL [Concomitant]
     Route: 065
  10. CARVEDILOL [Concomitant]
     Route: 065
  11. DIGOXIN [Suspect]
     Dosage: 0.125MG DAILY
     Route: 065
  12. VALSARTAN [Concomitant]
     Dosage: 160MG DAILY
     Route: 065

REACTIONS (7)
  - TOXICITY TO VARIOUS AGENTS [None]
  - BRADYCARDIA [None]
  - VENTRICULAR EXTRASYSTOLES [None]
  - UNRESPONSIVE TO STIMULI [None]
  - ATRIOVENTRICULAR BLOCK COMPLETE [None]
  - PULSELESS ELECTRICAL ACTIVITY [None]
  - VENTRICULAR FIBRILLATION [None]
